FAERS Safety Report 20461621 (Version 1)
Quarter: 2022Q1

REPORT INFORMATION
  Report Type: Spontaneous
  Country: US (occurrence: US)
  Receive Date: 20220211
  Receipt Date: 20220211
  Transmission Date: 20220424
  Serious: Yes (Hospitalization)
  Sender: FDA-Public Use
  Company Number: US-MYLANLABS-2022M1011633

PATIENT
  Age: 22 Year
  Sex: Female

DRUGS (2)
  1. HEPARIN [Suspect]
     Active Substance: HEPARIN SODIUM
     Indication: Deep vein thrombosis
     Dosage: UNK
     Route: 042
  2. BIVALIRUDIN [Suspect]
     Active Substance: BIVALIRUDIN
     Indication: Deep vein thrombosis
     Dosage: DRIP
     Route: 041

REACTIONS (5)
  - Heparin-induced thrombocytopenia [Recovering/Resolving]
  - Skin necrosis [Unknown]
  - Pericardial haemorrhage [Recovered/Resolved]
  - Subarachnoid haemorrhage [Recovering/Resolving]
  - Cardiac tamponade [Recovered/Resolved]
